FAERS Safety Report 21107128 (Version 7)
Quarter: 2023Q2

REPORT INFORMATION
  Report Type: Report from Study
  Country: GB (occurrence: GB)
  Receive Date: 20220720
  Receipt Date: 20230628
  Transmission Date: 20230721
  Serious: Yes (Hospitalization, Other)
  Sender: FDA-Public Use
  Company Number: GB-Actavis-081331

PATIENT
  Age: 52 Year
  Sex: Male
  Weight: 98.3 kg

DRUGS (9)
  1. CARBOPLATIN [Suspect]
     Active Substance: CARBOPLATIN
     Indication: Anal squamous cell carcinoma
     Dosage: AUC 5 (ON DAY 1 OF EACH 28-DAY CYCLE), CYCLIC
     Route: 042
  2. CARBOPLATIN [Suspect]
     Active Substance: CARBOPLATIN
     Dosage: AUC 5 (ON DAY 1 OF EACH 28-DAY CYCLE)
     Route: 042
     Dates: start: 20211028
  3. PACLITAXEL [Suspect]
     Active Substance: PACLITAXEL
     Indication: Anal squamous cell carcinoma
     Dosage: 80MG/M2 (CYCLIC) ON DAYS 1, 8 AND 15 OF EACH 28-DAY CYCLE;
     Route: 042
  4. PACLITAXEL [Suspect]
     Active Substance: PACLITAXEL
     Dosage: C2D1, ON DAYS 1, 8 AND 15 OF EACH 28-DAY CYCLE
     Route: 042
     Dates: start: 20211026, end: 20211026
  5. PACLITAXEL [Suspect]
     Active Substance: PACLITAXEL
     Dosage: ON DAYS 1, 8 AND 15 OF EACH 28-DAY CYCLE
     Route: 042
     Dates: start: 20211028
  6. GABAPENTIN [Suspect]
     Active Substance: GABAPENTIN
     Indication: Anal squamous cell carcinoma
     Dosage: UNK
     Dates: start: 2021
  7. MORPHINE SULFATE [Suspect]
     Active Substance: MORPHINE SULFATE
     Dosage: UNK
     Dates: start: 2021
  8. ORAMORPH SR SUSTAINED RELEASE [Suspect]
     Active Substance: MORPHINE SULFATE
     Dosage: UNKNOWN
     Dates: start: 2021
  9. INVESTIGATIONAL PRODUCT [Suspect]
     Active Substance: INVESTIGATIONAL PRODUCT
     Indication: Anal squamous cell carcinoma
     Dosage: 500 MG, MONTHLY EVERY 4 WEEKS
     Route: 042
     Dates: start: 20210930, end: 20210930

REACTIONS (4)
  - Fungating wound [Not Recovered/Not Resolved]
  - Wound infection [Not Recovered/Not Resolved]
  - Infusion related reaction [Recovered/Resolved]
  - Neutropenic sepsis [Recovered/Resolved]

NARRATIVE: CASE EVENT DATE: 20211007
